FAERS Safety Report 7724603-1 (Version None)
Quarter: 2011Q3

REPORT INFORMATION
  Report Type: 
  Country: None (occurrence: None)
  Receive Date: 20110901
  Receipt Date: 20110826
  Transmission Date: 20111222
  Serious: Yes (Hospitalization)
  Sender: FDA-Public Use
  Company Number: US-ALEXION-A201001136

PATIENT
  Sex: Female
  Weight: 72.7 kg

DRUGS (14)
  1. SOLIRIS [Suspect]
     Dosage: 1200 MG, Q2W
     Dates: start: 20101109, end: 20101101
  2. AMBIEN [Concomitant]
     Dosage: UNK
     Route: 048
  3. SOLIRIS [Suspect]
     Indication: PAROXYSMAL NOCTURNAL HAEMOGLOBINURIA
     Dosage: 600 MG, QW
     Route: 042
     Dates: start: 20100721, end: 20100810
  4. TALWIN                             /00052101/ [Concomitant]
     Indication: PAIN
     Dosage: UNK
     Route: 048
  5. COUMADIN [Concomitant]
     Indication: ANTICOAGULANT THERAPY
  6. SOLIRIS [Suspect]
     Dosage: 900 MG, Q2W
     Route: 042
     Dates: start: 20100817, end: 20100101
  7. SOLIRIS [Suspect]
     Dosage: 900 MG, Q2W
     Route: 042
  8. ORTHO EVRA [Concomitant]
     Indication: CONTRACEPTION
     Dosage: UNK
     Route: 048
  9. METOCLOPRAMIDE [Suspect]
  10. ATIVAN [Concomitant]
     Dosage: UNK
     Route: 048
  11. METHIMAZOLE [Concomitant]
     Indication: BASEDOW'S DISEASE
     Dosage: UNK (NOT TAKING)
     Route: 048
  12. LOVENOX [Concomitant]
     Indication: ANTICOAGULANT THERAPY
     Dosage: UNK
  13. SOLIRIS [Suspect]
     Dosage: 1200 MG, QW
     Dates: start: 20101123
  14. CYMBALTA [Concomitant]
     Dosage: UNK
     Route: 048

REACTIONS (7)
  - IMPAIRED GASTRIC EMPTYING [None]
  - IRRITABLE BOWEL SYNDROME [None]
  - CONTUSION [None]
  - COLITIS [None]
  - POOR VENOUS ACCESS [None]
  - HYPERSENSITIVITY [None]
  - OESOPHAGITIS [None]
